FAERS Safety Report 7126059-9 (Version None)
Quarter: 2010Q4

REPORT INFORMATION
  Report Type: 
  Country: None (occurrence: None)
  Receive Date: 20101129
  Receipt Date: 20101122
  Transmission Date: 20110411
  Serious: Yes (Hospitalization)
  Sender: FDA-Public Use
  Company Number: US-MERCK-1011USA02958

PATIENT
  Age: 63 Year
  Sex: Female

DRUGS (3)
  1. JANUVIA [Suspect]
     Indication: DIABETES MELLITUS
     Route: 048
     Dates: start: 20080101, end: 20101101
  2. LIPITOR [Concomitant]
     Indication: DEPRESSION
     Route: 065
  3. LIPITOR [Concomitant]
     Indication: BLOOD PRESSURE
     Route: 065

REACTIONS (4)
  - HEADACHE [None]
  - INFLAMMATION [None]
  - KIDNEY ENLARGEMENT [None]
  - PAIN [None]
